FAERS Safety Report 24987097 (Version 1)
Quarter: 2025Q1

REPORT INFORMATION
  Report Type: Spontaneous
  Country: CN (occurrence: CN)
  Receive Date: 20250219
  Receipt Date: 20250219
  Transmission Date: 20250409
  Serious: Yes (Hospitalization)
  Sender: PURDUE
  Company Number: CN-NAPPMUNDI-GBR-2025-0123578

PATIENT
  Age: 43 Year
  Sex: Male
  Weight: 43 kg

DRUGS (2)
  1. BUPRENORPHINE [Suspect]
     Active Substance: BUPRENORPHINE
     Indication: Tumour pain
     Dosage: 5 MILLIGRAM, WEEKLY
     Route: 061
     Dates: start: 20250203, end: 20250208
  2. GABAPENTIN [Concomitant]
     Active Substance: GABAPENTIN
     Indication: Tumour pain
     Dosage: 0.2 GRAM, TID
     Route: 048
     Dates: start: 20250203, end: 20250206

REACTIONS (1)
  - Drug eruption [Recovering/Resolving]

NARRATIVE: CASE EVENT DATE: 20250206
